FAERS Safety Report 21785356 (Version 1)
Quarter: 2022Q4

REPORT INFORMATION
  Report Type: Report from Study
  Country: US (occurrence: US)
  Receive Date: 20221227
  Receipt Date: 20221227
  Transmission Date: 20230112
  Serious: No
  Sender: FDA-Public Use
  Company Number: US-ABBVIE-4200355

PATIENT
  Sex: Female

DRUGS (1)
  1. RINVOQ [Suspect]
     Active Substance: UPADACITINIB
     Indication: Rheumatoid arthritis
     Route: 048

REACTIONS (7)
  - Panic attack [Recovered/Resolved]
  - Chest discomfort [Unknown]
  - Hypoaesthesia oral [Unknown]
  - Chills [Unknown]
  - Heart rate increased [Unknown]
  - Blood pressure increased [Unknown]
  - Dyspnoea [Unknown]
